FAERS Safety Report 15076212 (Version 1)
Quarter: 2018Q2

REPORT INFORMATION
  Report Type: Report from Study
  Country: BR (occurrence: BR)
  Receive Date: 20180627
  Receipt Date: 20180627
  Transmission Date: 20180711
  Serious: Yes (Death, Other)
  Sender: FDA-Public Use
  Company Number: PHHY2018BR029537

PATIENT
  Age: 61 Year
  Sex: Female
  Weight: 66 kg

DRUGS (2)
  1. LOSARTAN. [Suspect]
     Active Substance: LOSARTAN
     Indication: HYPERTENSION
     Dosage: 1 DF, QD
     Route: 048
  2. DIOVAN AMLO FIX [Suspect]
     Active Substance: AMLODIPINE\VALSARTAN
     Indication: HYPERTENSION
     Dosage: 1 DF (AMLODIPINE 5 AND VALSARTAN 160, UNITS NOT PROVIDED), QD
     Route: 048

REACTIONS (10)
  - Dizziness [Unknown]
  - Head injury [Fatal]
  - Coagulopathy [Fatal]
  - Drug intolerance [Unknown]
  - Drug ineffective [Unknown]
  - Fall [Fatal]
  - Blood pressure inadequately controlled [Unknown]
  - Thrombosis [Fatal]
  - Malaise [Unknown]
  - Uterine cancer [Unknown]

NARRATIVE: CASE EVENT DATE: 19861023
